FAERS Safety Report 8574423-3 (Version None)
Quarter: 2012Q3

REPORT INFORMATION
  Report Type: 
  Country: None (occurrence: None)
  Receive Date: 20120806
  Receipt Date: 20120726
  Transmission Date: 20120928
  Serious: Yes (Hospitalization, Other)
  Sender: FDA-Public Use
  Company Number: JP-009507513-1204USA00960

PATIENT

DRUGS (11)
  1. ALLEGRA [Concomitant]
     Indication: DERMATITIS ATOPIC
     Dosage: 60 MG, BID
     Route: 048
     Dates: start: 20111023
  2. ZOLPIDEM [Concomitant]
     Indication: INSOMNIA
     Dosage: 10 MG, QD
     Route: 048
     Dates: start: 20111023, end: 20120403
  3. KERATINAMIN [Concomitant]
     Indication: DERMATITIS ATOPIC
     Dosage: 1 UNK, PRN
     Route: 061
     Dates: start: 20111023
  4. LIDOMEX [Concomitant]
     Indication: DERMATITIS ATOPIC
     Dosage: 1 UNK, PRN
     Route: 061
     Dates: start: 20111023
  5. VANIPREVIR [Suspect]
     Indication: HEPATITIS C
     Dosage: 300 MG, BID
     Route: 048
     Dates: start: 20111122
  6. RIBAVIRIN [Suspect]
     Indication: HEPATITIS C
     Dosage: TREATMENT 1
     Route: 048
     Dates: start: 20111122, end: 20120327
  7. PYDOXAL [Concomitant]
     Indication: DERMATITIS ATOPIC
     Dosage: 10 MG, TID
     Route: 048
     Dates: start: 20111023, end: 20120403
  8. OLOPATADINE HCL [Concomitant]
     Indication: DERMATITIS ATOPIC
     Dosage: 5 MG, BID
     Route: 048
     Dates: start: 20111023
  9. PEGINTERFERON ALFA-2B [Suspect]
     Indication: HEPATITIS C
     Dosage: 60 ?G, QW
     Route: 058
     Dates: start: 20111122, end: 20120321
  10. FLAVITAN [Concomitant]
     Indication: DERMATITIS ATOPIC
     Dosage: 10 MG, TID
     Route: 048
     Dates: start: 20111023, end: 20120403
  11. RIBAVIRIN [Suspect]
     Dosage: TREATMENT 2
     Route: 048
     Dates: start: 20111122, end: 20120326

REACTIONS (5)
  - DEPRESSION [None]
  - SUICIDAL IDEATION [None]
  - ANXIETY [None]
  - SLEEP DISORDER [None]
  - PSYCHOMOTOR RETARDATION [None]
